FAERS Safety Report 5123658-0 (Version None)
Quarter: 2006Q4

REPORT INFORMATION
  Report Type: 
  Country: None (occurrence: None)
  Receive Date: 20061010
  Receipt Date: 20060925
  Transmission Date: 20070319
  Serious: Yes (Other)
  Sender: FDA-Public Use
  Company Number: PHBS2006BE14782

PATIENT
  Age: 28 Year
  Sex: Male

DRUGS (2)
  1. NEORAL [Suspect]
     Indication: DERMATITIS ATOPIC
     Dosage: 100 MG, BID
     Route: 048
     Dates: start: 20010801
  2. ANTIHISTAMINICS [Concomitant]

REACTIONS (1)
  - AZOOSPERMIA [None]
